FAERS Safety Report 20049783 (Version 4)
Quarter: 2021Q4

REPORT INFORMATION
  Report Type: Spontaneous
  Country: JP (occurrence: JP)
  Receive Date: 20211109
  Receipt Date: 20211215
  Transmission Date: 20220303
  Serious: No
  Sender: FDA-Public Use
  Company Number: JP-GILEAD-2021-0555299

PATIENT
  Age: 38 Year
  Sex: Male
  Weight: 98.9 kg

DRUGS (13)
  1. VEKLURY [Suspect]
     Active Substance: REMDESIVIR
     Indication: COVID-19
     Dosage: 200 MG, QD
     Route: 041
     Dates: start: 20210512, end: 20210512
  2. VEKLURY [Suspect]
     Active Substance: REMDESIVIR
     Dosage: 100 MG, QD
     Route: 041
     Dates: start: 20210513, end: 20210516
  3. GARENOXACIN MESYLATE [Suspect]
     Active Substance: GARENOXACIN MESYLATE
     Indication: Pneumonia bacterial
     Dosage: 400 MG, QD
     Route: 048
     Dates: start: 20210511, end: 20210515
  4. NEXIUM [Suspect]
     Active Substance: ESOMEPRAZOLE MAGNESIUM
     Indication: COVID-19
     Dosage: 20 MG, QD
     Route: 048
     Dates: start: 20210512, end: 20210519
  5. NEXIUM [Suspect]
     Active Substance: ESOMEPRAZOLE MAGNESIUM
     Indication: Prophylaxis against gastrointestinal ulcer
  6. DECADRON [Concomitant]
     Active Substance: DEXAMETHASONE
     Indication: COVID-19
     Dosage: 6 MG, QD
     Route: 048
     Dates: start: 20210512, end: 20210512
  7. DECADRON [Concomitant]
     Active Substance: DEXAMETHASONE
     Dosage: 10 MG, QD
     Route: 048
     Dates: start: 20210513, end: 20210519
  8. CALONAL [Concomitant]
     Active Substance: ACETAMINOPHEN
     Indication: COVID-19
     Dosage: 400 MG, PRN
     Route: 048
     Dates: start: 20210510, end: 20210510
  9. ACETAMINOPHEN [Concomitant]
     Active Substance: ACETAMINOPHEN
     Indication: COVID-19
     Dosage: 500 MG, PRN
     Route: 048
     Dates: start: 20210510, end: 20210513
  10. DEXTROMETHORPHAN HYDROBROMIDE [Concomitant]
     Active Substance: DEXTROMETHORPHAN HYDROBROMIDE
     Indication: COVID-19
     Dosage: 15 MG, TID
     Route: 048
     Dates: start: 20210511, end: 20210519
  11. MIYA-BM [Concomitant]
     Active Substance: CLOSTRIDIUM BUTYRICUM SPORES STRAIN M-55
     Indication: COVID-19
     Dosage: 1 MG, TID
     Route: 048
     Dates: start: 20210511, end: 20210517
  12. LOXOPROFEN SODIUM [Concomitant]
     Active Substance: LOXOPROFEN SODIUM
     Indication: COVID-19
     Dosage: 60 MG, PRN
     Route: 048
     Dates: start: 20210511, end: 20210512
  13. LOXOPROFEN SODIUM [Concomitant]
     Active Substance: LOXOPROFEN SODIUM
     Indication: Headache

REACTIONS (2)
  - Bradycardia [Recovered/Resolved]
  - Liver disorder [Recovering/Resolving]

NARRATIVE: CASE EVENT DATE: 20210513
